FAERS Safety Report 24387191 (Version 1)
Quarter: 2024Q4

REPORT INFORMATION
  Report Type: Spontaneous
  Country: US (occurrence: US)
  Receive Date: 20241002
  Receipt Date: 20241002
  Transmission Date: 20250115
  Serious: No
  Sender: QOL
  Company Number: US-QOL Medical, LLC-2162340

PATIENT
  Age: 62 Year
  Sex: Female
  Weight: 46.364 kg

DRUGS (5)
  1. SUCRAID [Suspect]
     Active Substance: SACROSIDASE
     Dates: start: 202303, end: 20230725
  2. OMEPRAZOLE [Concomitant]
     Active Substance: OMEPRAZOLE
     Dates: start: 202101
  3. MECLIZINE [Concomitant]
     Active Substance: MECLIZINE HYDROCHLORIDE
     Dates: start: 2000
  4. ORENCIA [Concomitant]
     Active Substance: ABATACEPT
     Dates: start: 202303
  5. PROLIA [Concomitant]
     Active Substance: DENOSUMAB
     Dates: start: 202101

REACTIONS (3)
  - Dehydration [Unknown]
  - Lethargy [Unknown]
  - Asthenia [Unknown]

NARRATIVE: CASE EVENT DATE: 20230601
